FAERS Safety Report 7776410-1 (Version None)
Quarter: 2011Q3

REPORT INFORMATION
  Report Type: 
  Country: None (occurrence: None)
  Receive Date: 20110926
  Receipt Date: 20110922
  Transmission Date: 20111222
  Serious: Yes (Hospitalization)
  Sender: FDA-Public Use
  Company Number: IT-PFIZER INC-2011140679

PATIENT
  Age: 40 Year
  Sex: Male

DRUGS (2)
  1. ENEMAS [Suspect]
     Indication: INFREQUENT BOWEL MOVEMENTS
     Dosage: UNK
     Route: 054
     Dates: start: 20110516, end: 20110523
  2. TOLTERODINE TARTRATE [Suspect]
     Indication: POLLAKIURIA
     Dosage: 4 MG, 1X/DAY
     Route: 048
     Dates: start: 20110518, end: 20110523

REACTIONS (3)
  - RASH PRURITIC [None]
  - URTICARIA [None]
  - ABDOMINAL PAIN UPPER [None]
